FAERS Safety Report 18592652 (Version 1)
Quarter: 2020Q4

REPORT INFORMATION
  Report Type: Spontaneous
  Country: IT (occurrence: IT)
  Receive Date: 20201208
  Receipt Date: 20201208
  Transmission Date: 20210114
  Serious: Yes (Other)
  Sender: FDA-Public Use
  Company Number: IT-TOLMAR, INC.-20IT024236

PATIENT
  Sex: Male

DRUGS (8)
  1. LEVETIRACETAM. [Suspect]
     Active Substance: LEVETIRACETAM
     Dosage: 7 MG/KG/DOSE THREE TIMES DAILY
     Route: 042
  2. LEVETIRACETAM. [Suspect]
     Active Substance: LEVETIRACETAM
     Dosage: 60 MG/KG
     Route: 042
  3. LEVETIRACETAM. [Suspect]
     Active Substance: LEVETIRACETAM
     Indication: NEONATAL SEIZURE
     Dosage: 40 MG/KG AS A BOLUS
     Route: 042
  4. PYRIDOXINE [Suspect]
     Active Substance: PYRIDOXINE
     Indication: NEONATAL SEIZURE
     Dosage: BOLUS (100 MG/DAY)
     Route: 042
  5. MIDAZOLAM. [Suspect]
     Active Substance: MIDAZOLAM
     Indication: NEONATAL SEIZURE
     Dosage: UPTITRATED TO 2UG/KG/MIN
     Route: 042
  6. LUNG SURFACTANTS [Concomitant]
     Indication: RESPIRATORY DISORDER
     Dosage: UNK
     Route: 065
  7. LEVETIRACETAM. [Suspect]
     Active Substance: LEVETIRACETAM
     Dosage: MAINTENANCE DOSE OF 10 MG/KG/DOSE THREE TIMES DAILY
     Route: 042
  8. PHENOBARBITAL. [Suspect]
     Active Substance: PHENOBARBITAL
     Indication: NEONATAL SEIZURE
     Dosage: BOLUS (20 MG/DAY)
     Route: 042

REACTIONS (2)
  - Therapeutic product effect incomplete [Unknown]
  - Cerebral venous sinus thrombosis [Recovered/Resolved]
